FAERS Safety Report 7002695-5 (Version None)
Quarter: 2010Q3

REPORT INFORMATION
  Report Type: 
  Country: None (occurrence: None)
  Receive Date: 20100920
  Receipt Date: 20100628
  Transmission Date: 20110219
  Serious: Yes (Hospitalization, Other)
  Sender: FDA-Public Use
  Company Number: US-ASTRAZENECA-2007UW09617

PATIENT
  Age: 36 Year
  Sex: Male
  Weight: 95.3 kg

DRUGS (47)
  1. SEROQUEL [Suspect]
     Indication: BIPOLAR DISORDER
     Dosage: 25-300 MG
     Route: 048
     Dates: start: 19980901
  2. SEROQUEL [Suspect]
     Indication: DEPRESSION
     Dosage: 25-300 MG
     Route: 048
     Dates: start: 19980901
  3. SEROQUEL [Suspect]
     Indication: SCHIZOPHRENIA
     Dosage: 25-300 MG
     Route: 048
     Dates: start: 19980901
  4. SEROQUEL [Suspect]
     Dosage: 25-200 MG
     Route: 048
     Dates: start: 19980101, end: 20070123
  5. SEROQUEL [Suspect]
     Dosage: 25-200 MG
     Route: 048
     Dates: start: 19980101, end: 20070123
  6. SEROQUEL [Suspect]
     Dosage: 25-200 MG
     Route: 048
     Dates: start: 19980101, end: 20070123
  7. SEROQUEL [Suspect]
     Dosage: 200 MG - 300 MG
     Route: 048
     Dates: start: 19991027
  8. SEROQUEL [Suspect]
     Dosage: 200 MG - 300 MG
     Route: 048
     Dates: start: 19991027
  9. SEROQUEL [Suspect]
     Dosage: 200 MG - 300 MG
     Route: 048
     Dates: start: 19991027
  10. ZYPREXA [Suspect]
     Indication: BIPOLAR DISORDER
     Route: 048
     Dates: start: 19990415, end: 19990520
  11. ZYPREXA [Suspect]
     Indication: SCHIZOPHRENIA
     Route: 048
     Dates: start: 19990415, end: 19990520
  12. ZYPREXA [Suspect]
     Indication: DEPRESSION
     Route: 048
     Dates: start: 19990415, end: 19990520
  13. ZYPREXA [Suspect]
     Dosage: 5 MG - 7.5 MG
     Route: 048
     Dates: start: 19990401, end: 19990501
  14. ZYPREXA [Suspect]
     Dosage: 5 MG - 7.5 MG
     Route: 048
     Dates: start: 19990401, end: 19990501
  15. ZYPREXA [Suspect]
     Dosage: 5 MG - 7.5 MG
     Route: 048
     Dates: start: 19990401, end: 19990501
  16. RISPERDAL [Suspect]
     Indication: BIPOLAR DISORDER
     Route: 048
     Dates: start: 19971201, end: 19981101
  17. RISPERDAL [Suspect]
     Indication: SCHIZOPHRENIA
     Route: 048
     Dates: start: 19971201, end: 19981101
  18. RISPERDAL [Suspect]
     Indication: DEPRESSION
     Route: 048
     Dates: start: 19971201, end: 19981101
  19. HALDOL [Concomitant]
     Indication: DEPRESSION
     Dates: start: 19990101, end: 20000101
  20. HALDOL [Concomitant]
     Indication: SCHIZOPHRENIA
     Dates: start: 19990101, end: 20000101
  21. HALDOL [Concomitant]
     Indication: BIPOLAR DISORDER
     Dates: start: 19990101, end: 20000101
  22. HALDOL [Concomitant]
     Dates: start: 20060101
  23. HALDOL [Concomitant]
     Dates: start: 20060101
  24. HALDOL [Concomitant]
     Dates: start: 20060101
  25. HALDOL [Concomitant]
     Dosage: STRENGTH 1 MG - 5 MG
  26. HALDOL [Concomitant]
     Dosage: STRENGTH 1 MG - 5 MG
  27. HALDOL [Concomitant]
     Dosage: STRENGTH 1 MG - 5 MG
  28. ZOLOFT [Concomitant]
     Indication: DEPRESSION
     Dosage: STRENGTH 50 MG, 100 MG, 150 MG  DOSE- 50 - 150 MG DAILY
     Route: 048
  29. AVANDIA [Concomitant]
  30. LIPITOR [Concomitant]
     Indication: BLOOD CHOLESTEROL INCREASED
  31. LIPITOR [Concomitant]
     Indication: HYPERLIPIDAEMIA
  32. ACTOS [Concomitant]
  33. KLONOPIN [Concomitant]
     Route: 048
     Dates: start: 19980101, end: 19990101
  34. KLONOPIN [Concomitant]
     Route: 048
     Dates: start: 20070101
  35. ALTACE [Concomitant]
     Indication: HYPERTENSION
  36. INSULIN [Concomitant]
  37. TRICOR [Concomitant]
     Indication: BLOOD TRIGLYCERIDES INCREASED
  38. BYETTA [Concomitant]
     Indication: WEIGHT CONTROL
     Dates: start: 20000101
  39. ABILIFY [Concomitant]
     Indication: SCHIZOPHRENIA
     Dosage: 5 MG TO 30 MG
     Dates: start: 20070101
  40. ABILIFY [Concomitant]
     Indication: BIPOLAR DISORDER
     Dosage: 5 MG TO 30 MG
     Dates: start: 20070101
  41. ABILIFY [Concomitant]
     Indication: DEPRESSION
     Dosage: 5 MG TO 30 MG
     Dates: start: 20070101
  42. BUSPAR [Concomitant]
     Dosage: 100 MG
     Dates: start: 19990101
  43. DEPAKOTE [Concomitant]
     Dates: start: 19990101
  44. PAXIL [Concomitant]
     Dates: start: 19970101
  45. PROZAC [Concomitant]
     Dates: start: 19980101, end: 19990101
  46. ZOCOR [Concomitant]
     Indication: BLOOD CHOLESTEROL INCREASED
  47. ZOCOR [Concomitant]
     Indication: HYPERLIPIDAEMIA

REACTIONS (11)
  - BACK DISORDER [None]
  - BLOOD CHOLESTEROL INCREASED [None]
  - BLOOD TRIGLYCERIDES INCREASED [None]
  - CARPAL TUNNEL SYNDROME [None]
  - DIABETES MELLITUS INADEQUATE CONTROL [None]
  - HYPERLIPIDAEMIA [None]
  - HYPOTENSION [None]
  - MUSCULOSKELETAL DISCOMFORT [None]
  - OBESITY [None]
  - PANCREATITIS ACUTE [None]
  - TYPE 2 DIABETES MELLITUS [None]
